FAERS Safety Report 8294497-7 (Version None)
Quarter: 2012Q2

REPORT INFORMATION
  Report Type: 
  Country: None (occurrence: None)
  Receive Date: 20120418
  Receipt Date: 20120409
  Transmission Date: 20120825
  Serious: Yes (Other)
  Sender: FDA-Public Use
  Company Number: US-FRI-1000029679

PATIENT
  Age: 32 Year
  Sex: Female

DRUGS (1)
  1. THYROID TAB [Suspect]
     Dosage: 15 MG
     Route: 048
     Dates: start: 20120202, end: 20120403

REACTIONS (3)
  - BLOOD THYROID STIMULATING HORMONE INCREASED [None]
  - DYSPHAGIA [None]
  - THYROID NEOPLASM [None]
